FAERS Safety Report 4312497-6 (Version None)
Quarter: 2004Q1

REPORT INFORMATION
  Report Type: 
  Country: None (occurrence: None)
  Receive Date: 20040303
  Receipt Date: 20040220
  Transmission Date: 20041129
  Serious: Yes (Death, Hospitalization, Other)
  Sender: FDA-Public Use
  Company Number: USA-2002-0000100

PATIENT
  Age: 38 Year
  Sex: Female

DRUGS (41)
  1. OXYCONTIN [Suspect]
     Indication: PAIN
     Dosage: MG, SEE TEXT, ORAL
     Route: 048
     Dates: start: 19971017, end: 20000701
  2. DURAGESIC [Suspect]
     Indication: PAIN
     Dosage: 75 MCG/HR, TRANSDERMAL
     Route: 062
     Dates: start: 19980815
  3. LORCET-HD [Suspect]
     Indication: PAIN
     Dosage: SEE TEX, ORAL
     Route: 048
  4. VICODIN [Suspect]
     Indication: PAIN
     Dosage: ORAL
     Route: 048
  5. PERCOCET [Suspect]
     Indication: PAIN
     Dosage: ORAL
     Route: 048
  6. NORCO [Suspect]
     Indication: PAIN
     Dosage: 10 MG, ORAL
     Route: 048
  7. ENDOCET (OXYCODONE HYDROCHLORIDE, PARACETAMOL) [Suspect]
     Indication: PAIN
     Dosage: 5 MG, ORAL
     Route: 048
  8. ROXICET [Suspect]
     Indication: PAIN
     Dosage: ORAL
     Route: 048
  9. PREMARIN [Concomitant]
  10. ULTRAM [Concomitant]
  11. DIAZEPAM [Concomitant]
  12. PENICILLIN-VK [Concomitant]
  13. ALBUTEROL [Concomitant]
  14. CODAMIN (AMINOPHENAZONE, CAFFEINE CITRATE, PHENACETIN) [Concomitant]
  15. VEETIDS [Concomitant]
  16. AMOXICILLIN [Concomitant]
  17. ANTABUSE [Concomitant]
  18. ERYTHROMYCIN [Concomitant]
  19. AMBIEN [Concomitant]
  20. HEMOCYTE-F TABLET (FOLIC ACID, FERROUS FUMARATE) [Concomitant]
  21. LOTRISONE [Concomitant]
  22. CHLORHEXIDINE (CHLORHEXIDINE) [Concomitant]
  23. VICOPROFEN [Concomitant]
  24. ALPRAZOLAM [Concomitant]
  25. CIPRO [Concomitant]
  26. TALACEN (PENTAZOCINE HYDROCHLORIDE) [Concomitant]
  27. METROGEL [Concomitant]
  28. PCR (ERYTHROMYCIN) [Concomitant]
  29. CYPROHEPTADINE HCL [Concomitant]
  30. ZOVIRAX COLD SORE CREAM (ACICLOVIR) [Concomitant]
  31. SEMPREX (ACRIVASTATIN) [Concomitant]
  32. CEPHALEXIN [Concomitant]
  33. NIZORAL [Concomitant]
  34. AUGMENTIN [Concomitant]
  35. RANITIDINE [Concomitant]
  36. ZITHROMAX [Concomitant]
  37. NEPHRO-VITE RX (ASCORBIC ACID, FOLIC, VITAMIN B NOS) [Concomitant]
  38. CELEBREX [Concomitant]
  39. METOCLOPRAMIDE [Concomitant]
  40. PEPCID [Concomitant]
  41. SYNTHROID [Concomitant]

REACTIONS (47)
  - ACUTE MYOCARDIAL INFARCTION [None]
  - ADRENAL INSUFFICIENCY [None]
  - ANOREXIA [None]
  - ASTHENIA [None]
  - ATELECTASIS [None]
  - BACK INJURY [None]
  - BACK PAIN [None]
  - BRONCHITIS ACUTE [None]
  - CACHEXIA [None]
  - CARDIAC FAILURE CONGESTIVE [None]
  - CARDIO-RESPIRATORY ARREST [None]
  - COAGULOPATHY [None]
  - COMA [None]
  - DEPRESSED LEVEL OF CONSCIOUSNESS [None]
  - DEPRESSION [None]
  - DIFFICULTY IN WALKING [None]
  - DRUG ABUSER [None]
  - DYSARTHRIA [None]
  - DYSPHAGIA [None]
  - ELECTROLYTE IMBALANCE [None]
  - EXOSTOSIS [None]
  - FALL [None]
  - FLUID INTAKE REDUCED [None]
  - GASTRITIS [None]
  - GLOBULINS INCREASED [None]
  - HEADACHE [None]
  - HEPATIC FAILURE [None]
  - HEPATIC STEATOSIS [None]
  - HEPATITIS A [None]
  - HIGH DENSITY LIPOPROTEIN DECREASED [None]
  - HYPOALBUMINAEMIA [None]
  - HYPOTHYROIDISM [None]
  - INJURY [None]
  - INTENTIONAL MISUSE [None]
  - IRON DEFICIENCY ANAEMIA [None]
  - LETHARGY [None]
  - MARASMUS [None]
  - NECK INJURY [None]
  - OEDEMA PERIPHERAL [None]
  - PAIN IN EXTREMITY [None]
  - PROTHROMBIN TIME PROLONGED [None]
  - ROAD TRAFFIC ACCIDENT [None]
  - TOOTH DISORDER [None]
  - VAGINITIS BACTERIAL [None]
  - VISION BLURRED [None]
  - WEIGHT DECREASED [None]
  - WHITE BLOOD CELL COUNT DECREASED [None]
